FAERS Safety Report 11380186 (Version 1)
Quarter: 2015Q3

REPORT INFORMATION
  Report Type: Spontaneous
  Country: US (occurrence: None)
  Receive Date: 20150813
  Receipt Date: 20150813
  Transmission Date: 20151125
  Serious: Yes (Life-Threatening, Hospitalization)
  Sender: FDA-Public Use
  Company Number: None

PATIENT
  Age: 82 Year
  Sex: Male

DRUGS (1)
  1. BCG LIVE [Suspect]
     Active Substance: BACILLUS CALMETTE-GUERIN SUBSTRAIN TICE LIVE ANTIGEN
     Indication: BLADDER CANCER

REACTIONS (6)
  - Hepatic enzyme increased [None]
  - Fatigue [None]
  - Blood bilirubin increased [None]
  - Pancytopenia [None]
  - Abdominal distension [None]
  - Decreased appetite [None]

NARRATIVE: CASE EVENT DATE: 20150701
